FAERS Safety Report 15787227 (Version 1)
Quarter: 2019Q1

REPORT INFORMATION
  Report Type: Spontaneous
  Country: JP (occurrence: JP)
  Receive Date: 20190103
  Receipt Date: 20190103
  Transmission Date: 20190417
  Serious: Yes (Hospitalization)
  Sender: FDA-Public Use
  Company Number: JP-AMREGENT-20182463

PATIENT
  Sex: Male

DRUGS (2)
  1. NO DRUG NAME [Concomitant]
     Dosage: UNKNOWN
     Route: 065
  2. TRANSAMIN [Suspect]
     Active Substance: TRANEXAMIC ACID
     Dosage: 1000 MG
     Route: 041

REACTIONS (2)
  - Anaphylactoid reaction [Unknown]
  - Intestinal ischaemia [Unknown]
